FAERS Safety Report 25893224 (Version 1)
Quarter: 2025Q4

REPORT INFORMATION
  Report Type: Spontaneous
  Country: US (occurrence: US)
  Receive Date: 20251008
  Receipt Date: 20251008
  Transmission Date: 20260117
  Serious: No
  Sender: NOVITIUM PHARMA
  Company Number: US-NOVITIUM PHARMA-000062

PATIENT
  Age: 73 Year
  Sex: Male
  Weight: 69.85 kg

DRUGS (2)
  1. PREDNISONE [Suspect]
     Active Substance: PREDNISONE
     Indication: Sinus disorder
     Dosage: 6 DAYS PACK, 10MG STARTED WITH 6, 10MG STARTED OFF WITH 6 THEN NEXT DAY 5 THEN NEXT DAY 4, THEN 3
     Route: 048
     Dates: start: 20250910, end: 20250915
  2. PREDNISONE [Suspect]
     Active Substance: PREDNISONE
     Indication: Hypersensitivity
     Dosage: 6 DAYS PACK, 10MG STARTED WITH 6, 10MG STARTED OFF WITH 6 THEN NEXT DAY 5 THEN NEXT DAY 4, THEN 3
     Route: 048
     Dates: start: 20250910, end: 20250915

REACTIONS (3)
  - Pain in extremity [Not Recovered/Not Resolved]
  - Chest pain [Not Recovered/Not Resolved]
  - Neck pain [Not Recovered/Not Resolved]

NARRATIVE: CASE EVENT DATE: 20250910
